FAERS Safety Report 13669406 (Version 3)
Quarter: 2017Q3

REPORT INFORMATION
  Report Type: Spontaneous
  Country: CA (occurrence: CA)
  Receive Date: 20170620
  Receipt Date: 20170821
  Transmission Date: 20171127
  Serious: Yes (Other)
  Sender: FDA-Public Use
  Company Number: CA-PFIZER INC-2017158138

PATIENT
  Age: 16 Month
  Sex: Male
  Weight: 11 kg

DRUGS (5)
  1. GENOTROPIN [Suspect]
     Active Substance: SOMATROPIN
     Dosage: 0.3 MG, 1X/DAY
     Route: 058
     Dates: start: 20161223
  2. GENOTROPIN [Suspect]
     Active Substance: SOMATROPIN
     Indication: PRADER-WILLI SYNDROME
     Dosage: 0.25 MG, 1X/DAY
     Route: 058
     Dates: start: 20161221
  3. CARNITOR [Concomitant]
     Active Substance: LEVOCARNITINE
     Dosage: 2 ML, 1X/DAY
  4. GENOTROPIN [Suspect]
     Active Substance: SOMATROPIN
     Dosage: 0.3 MG, ALTERNATE DAY
     Route: 058
  5. VITAMIN D /00107901/ [Concomitant]
     Active Substance: ERGOCALCIFEROL
     Dosage: UNK

REACTIONS (5)
  - Poor quality drug administered [Unknown]
  - Nasopharyngitis [Unknown]
  - Device issue [Recovered/Resolved]
  - Underdose [Recovered/Resolved]
  - Respiratory tract infection viral [Recovered/Resolved]
